FAERS Safety Report 7959650-8 (Version None)
Quarter: 2011Q4

REPORT INFORMATION
  Report Type: 
  Country: None (occurrence: None)
  Receive Date: 20111201
  Receipt Date: 20111115
  Transmission Date: 20120403
  Serious: Yes (Death)
  Sender: FDA-Public Use
  Company Number: 2009-072

PATIENT
  Age: 90 Year
  Sex: Male

DRUGS (3)
  1. NORVASC [Concomitant]
  2. FAZACLO ODT [Suspect]
     Indication: DEMENTIA
     Dosage: 12.5 MG, QD HS, ORAL
     Route: 048
     Dates: start: 20070717, end: 20090307
  3. CELEXA [Concomitant]

REACTIONS (3)
  - ACUTE RESPIRATORY FAILURE [None]
  - RENAL FAILURE ACUTE [None]
  - PNEUMONITIS [None]
